FAERS Safety Report 15204127 (Version 3)
Quarter: 2018Q3

REPORT INFORMATION
  Report Type: Spontaneous
  Country: US (occurrence: US)
  Receive Date: 20180726
  Receipt Date: 20180917
  Transmission Date: 20181010
  Serious: No
  Sender: FDA-Public Use
  Company Number: US-GLAXOSMITHKLINE-US2018128774

PATIENT
  Sex: Male

DRUGS (4)
  1. TANZEUM [Suspect]
     Active Substance: ALBIGLUTIDE
     Dosage: UNK
  2. TANZEUM [Suspect]
     Active Substance: ALBIGLUTIDE
     Indication: PRODUCT USED FOR UNKNOWN INDICATION
     Dosage: 50 MG, UNK
     Route: 058
  3. TANZEUM [Suspect]
     Active Substance: ALBIGLUTIDE
     Dosage: UNK
  4. TANZEUM [Suspect]
     Active Substance: ALBIGLUTIDE
     Dosage: UNK

REACTIONS (2)
  - Product quality issue [Unknown]
  - Wrong technique in device usage process [Unknown]
